FAERS Safety Report 8303525-1 (Version None)
Quarter: 2012Q2

REPORT INFORMATION
  Report Type: 
  Country: None (occurrence: None)
  Receive Date: 20120423
  Receipt Date: 20120418
  Transmission Date: 20120825
  Serious: Yes (Hospitalization)
  Sender: FDA-Public Use
  Company Number: US-PFIZER INC-2012096646

PATIENT
  Sex: Male
  Weight: 122 kg

DRUGS (15)
  1. TYLENOL (CAPLET) [Concomitant]
     Dosage: 975 MG, 3X/DAY
  2. LISINOPRIL [Concomitant]
     Dosage: 5 MG, DAILY
  3. BUMEX [Concomitant]
     Dosage: 1 MG, 2X/DAY
  4. LANOXIN [Concomitant]
     Dosage: 0.125 MG, DAILY
  5. WARFARIN SODIUM [Concomitant]
     Dosage: 10 MG, DAILY
  6. ROCEPHIN [Concomitant]
     Dosage: 2 G, DAILY
  7. METHOCARBAMOL [Concomitant]
     Dosage: 1000 MG, 3X/DAY
  8. GLIPIZIDE [Concomitant]
     Dosage: 10 MG, 2X/DAY
  9. PRAVASTATIN [Concomitant]
     Dosage: 80 MG, DAILY
  10. OMEPRAZOLE [Concomitant]
     Dosage: 40 MG, 2X/DAY
  11. MAGNESIUM OXIDE [Concomitant]
     Dosage: 400 MG, DAILY
  12. POLYETHYLENE GLYCOL [Concomitant]
     Dosage: 17 G, DAILY
  13. FISH OIL [Concomitant]
     Dosage: 1000 MG, 2X/DAY
  14. TIKOSYN [Suspect]
     Indication: ATRIAL FIBRILLATION
     Dosage: 250 UG, 2X/DAY
     Dates: start: 20080101
  15. COREG [Concomitant]
     Dosage: 50 MG, 2X/DAY

REACTIONS (19)
  - DYSPNOEA [None]
  - NAUSEA [None]
  - SLEEP APNOEA SYNDROME [None]
  - STREPTOCOCCAL BACTERAEMIA [None]
  - BARRETT'S OESOPHAGUS [None]
  - BLOOD GLUCOSE DECREASED [None]
  - COLONIC POLYP [None]
  - ROTATOR CUFF SYNDROME [None]
  - HAEMATOCRIT DECREASED [None]
  - RENAL FAILURE CHRONIC [None]
  - EJECTION FRACTION DECREASED [None]
  - HAEMORRHOIDS [None]
  - CARDIOMYOPATHY [None]
  - HYPERTENSION [None]
  - INTERNATIONAL NORMALISED RATIO INCREASED [None]
  - VENTRICULAR FAILURE [None]
  - DYSLIPIDAEMIA [None]
  - HYPOTHYROIDISM [None]
  - BLOOD CREATININE DECREASED [None]
